FAERS Safety Report 16803951 (Version 1)
Quarter: 2019Q3

REPORT INFORMATION
  Report Type: Spontaneous
  Country: GB (occurrence: GB)
  Receive Date: 20190913
  Receipt Date: 20190913
  Transmission Date: 20191005
  Serious: Yes (Other)
  Sender: FDA-Public Use
  Company Number: GB-AUROBINDO-AUR-APL-2019-059508

PATIENT
  Age: 76 Year
  Sex: Male

DRUGS (1)
  1. ACICLOVIR [Suspect]
     Active Substance: ACYCLOVIR
     Indication: HERPES ZOSTER
     Dosage: 4000 MILLIGRAM, DAILY
     Route: 048
     Dates: start: 20190731, end: 20190807

REACTIONS (2)
  - Clumsiness [Unknown]
  - Dizziness [Unknown]

NARRATIVE: CASE EVENT DATE: 20190801
